FAERS Safety Report 6872206-3 (Version None)
Quarter: 2010Q3

REPORT INFORMATION
  Report Type: 
  Country: None (occurrence: None)
  Receive Date: 20100723
  Receipt Date: 20100709
  Transmission Date: 20110219
  Serious: Yes (Other)
  Sender: FDA-Public Use
  Company Number: US-JNJFOC-20100703351

PATIENT
  Age: 55 Year
  Sex: Male
  Weight: 74.84 kg

DRUGS (3)
  1. TYLENOL COLD MULTI-SYMPTOM SEVERE DAYTIME COOL BURST [Suspect]
     Indication: PYREXIA
     Route: 048
  2. TYLENOL COLD MULTI-SYMPTOM SEVERE DAYTIME COOL BURST [Suspect]
     Indication: INFLUENZA
     Route: 048
  3. MULTI-VITAMINS [Concomitant]
     Route: 065

REACTIONS (4)
  - BACTERIAL INFECTION [None]
  - DRUG INEFFECTIVE [None]
  - PRODUCT QUALITY ISSUE [None]
  - URTICARIA [None]
